FAERS Safety Report 5516801-2 (Version None)
Quarter: 2007Q4

REPORT INFORMATION
  Report Type: 
  Country: None (occurrence: None)
  Receive Date: 20071114
  Receipt Date: 20071102
  Transmission Date: 20080405
  Serious: Yes (Hospitalization)
  Sender: FDA-Public Use
  Company Number: CA-WYE-H00830107

PATIENT
  Age: 80 Year
  Sex: Male

DRUGS (1)
  1. AMIODARONE [Suspect]
     Indication: SICK SINUS SYNDROME
     Dosage: DOSE AND FREQUENCY NOT SPECIFIED
     Route: 048

REACTIONS (4)
  - DRUG TOXICITY [None]
  - DYSPNOEA [None]
  - PANCYTOPENIA [None]
  - PULMONARY HYPERTENSION [None]
